FAERS Safety Report 22005423 (Version 3)
Quarter: 2023Q2

REPORT INFORMATION
  Report Type: Spontaneous
  Country: GB (occurrence: GB)
  Receive Date: 20230217
  Receipt Date: 20230518
  Transmission Date: 20230722
  Serious: Yes (Death, Life-Threatening, Hospitalization)
  Sender: FDA-Public Use
  Company Number: GB-PFIZER INC-PV202300030085

PATIENT
  Age: 61 Year
  Sex: Male

DRUGS (2)
  1. GENOTROPIN [Suspect]
     Active Substance: SOMATROPIN
     Indication: Growth hormone deficiency
     Dosage: 0.2 MG, 1X/DAY
     Route: 058
  2. GENOTROPIN [Suspect]
     Active Substance: SOMATROPIN
     Indication: Hypopituitarism

REACTIONS (5)
  - Death [Fatal]
  - Malaise [Not Recovered/Not Resolved]
  - Confusional state [Not Recovered/Not Resolved]
  - Cough [Unknown]
  - Motor dysfunction [Unknown]
